FAERS Safety Report 4622334-8 (Version None)
Quarter: 2005Q1

REPORT INFORMATION
  Report Type: 
  Country: None (occurrence: None)
  Receive Date: 20050325
  Receipt Date: 20050325
  Transmission Date: 20050727
  Serious: Yes (Hospitalization)
  Sender: FDA-Public Use
  Company Number: None

PATIENT
  Age: 60 Year
  Sex: Male
  Weight: 49.8957 kg

DRUGS (6)
  1. GEMCITABINE [Suspect]
     Dosage: 1590 MG IV DAYS 1 + 8
     Route: 042
  2. CARBOPLATIN [Suspect]
     Dosage: 587 MG IV DAY 1
     Route: 042
  3. ENSUREM [Concomitant]
  4. MEGACE [Concomitant]
  5. FLUNOSOLIDE [Concomitant]
  6. ALBUTEROL [Concomitant]

REACTIONS (5)
  - ASTHENIA [None]
  - DECREASED APPETITE [None]
  - FAECAL INCONTINENCE [None]
  - MALAISE [None]
  - PNEUMONIA ASPIRATION [None]
